FAERS Safety Report 4842530-4 (Version None)
Quarter: 2005Q4

REPORT INFORMATION
  Report Type: 
  Country: None (occurrence: None)
  Receive Date: 20051201
  Receipt Date: 20051123
  Transmission Date: 20060501
  Serious: Yes (Hospitalization, Other)
  Sender: FDA-Public Use
  Company Number: GB-JNJFOC-20051101350

PATIENT
  Sex: Male
  Weight: 96 kg

DRUGS (8)
  1. INFLIXIMAB [Suspect]
     Route: 042
  2. INFLIXIMAB [Suspect]
     Route: 042
  3. ALIMEMAZINE [Concomitant]
     Route: 065
  4. DICLOFENAC [Concomitant]
     Route: 065
  5. DIHYDROCODEINE [Concomitant]
     Route: 065
  6. PARACETAMOL [Concomitant]
     Route: 065
  7. RANITIDINE [Concomitant]
     Route: 065
  8. VITAMIN B COMPLEX CAP [Concomitant]
     Route: 065

REACTIONS (3)
  - DEPRESSION [None]
  - DRUG INEFFECTIVE [None]
  - PSORIASIS [None]
